FAERS Safety Report 9712256 (Version 3)
Quarter: 2014Q2

REPORT INFORMATION
  Report Type: Spontaneous
  Country: US (occurrence: US)
  Receive Date: 20131126
  Receipt Date: 20140510
  Transmission Date: 20141212
  Serious: No
  Sender: FDA-Public Use
  Company Number: US-BRISTOL-MYERS SQUIBB COMPANY-19159219

PATIENT
  Age: 69 Year
  Sex: Female
  Weight: 59.41 kg

DRUGS (3)
  1. BYDUREON [Suspect]
     Indication: TYPE 2 DIABETES MELLITUS
  2. METFORMIN [Concomitant]
     Dosage: 1DF:1000 UNIT NOS
  3. LOSARTAN [Concomitant]

REACTIONS (2)
  - Drug ineffective [Unknown]
  - Weight increased [Unknown]
